FAERS Safety Report 18427328 (Version 1)
Quarter: 2020Q4

REPORT INFORMATION
  Report Type: Spontaneous
  Country: IN (occurrence: IN)
  Receive Date: 20201026
  Receipt Date: 20201026
  Transmission Date: 20210114
  Serious: Yes (Other)
  Sender: FDA-Public Use
  Company Number: IN-AMNEAL PHARMACEUTICALS-2020-AMRX-03311

PATIENT
  Age: 63 Year
  Sex: Male

DRUGS (5)
  1. LIDOCAINE. [Suspect]
     Active Substance: LIDOCAINE
     Indication: ANAESTHESIA EYE
     Dosage: 4 MILLIGRAM
  2. ADRENALINE [EPINEPHRINE] [Concomitant]
     Active Substance: EPINEPHRINE
     Indication: ANAESTHESIA
     Dosage: 1 IN 200,000
  3. TROPICAMIDE. [Concomitant]
     Active Substance: TROPICAMIDE
     Indication: PUPIL DILATION PROCEDURE
     Dosage: UNK
  4. HYALURONIDASE [Concomitant]
     Active Substance: HYALURONIDASE
     Indication: ANAESTHESIA
     Dosage: UNK
  5. PHENYLEPHRINE HYDROCHLORIDE. [Concomitant]
     Active Substance: PHENYLEPHRINE HYDROCHLORIDE
     Indication: PUPIL DILATION PROCEDURE
     Dosage: UNK

REACTIONS (3)
  - Visual impairment [Recovering/Resolving]
  - Optic atrophy [Recovering/Resolving]
  - Drug hypersensitivity [Recovering/Resolving]
